FAERS Safety Report 6392216-2 (Version None)
Quarter: 2009Q4

REPORT INFORMATION
  Report Type: 
  Country: None (occurrence: None)
  Receive Date: 20091007
  Receipt Date: 20091001
  Transmission Date: 20100525
  Serious: Yes (Death)
  Sender: FDA-Public Use
  Company Number: IL-WYE-H11329709

PATIENT
  Sex: Male

DRUGS (4)
  1. TYGACIL [Suspect]
     Indication: ENDOCARDITIS BACTERIAL
     Dosage: DOSE AND DATES OF THERAPY NOT SPECIFIED
     Route: 042
  2. TYGACIL [Suspect]
     Indication: ACINETOBACTER INFECTION
  3. COLISTIN [Concomitant]
     Indication: ENDOCARDITIS BACTERIAL
     Dosage: NOT PROVIDE
     Route: 065
  4. COLISTIN [Concomitant]
     Indication: ACINETOBACTER INFECTION

REACTIONS (1)
  - NEONATAL MULTI-ORGAN FAILURE [None]
